FAERS Safety Report 9397434 (Version 1)
Quarter: 2013Q3

REPORT INFORMATION
  Report Type: Spontaneous
  Country: US (occurrence: US)
  Receive Date: 20130712
  Receipt Date: 20130712
  Transmission Date: 20140515
  Serious: No
  Sender: FDA-Public Use
  Company Number: US-JNJFOC-20130705734

PATIENT
  Age: 35 Year
  Sex: Male
  Weight: 108.86 kg

DRUGS (5)
  1. DURAGESIC [Suspect]
     Indication: BACK PAIN
     Dosage: 4 100UG/HR PATCHES/??EVERY 72 HOURS
     Route: 062
  2. DURAGESIC [Suspect]
     Indication: NECK PAIN
     Dosage: 4 100UG/HR PATCHES/??EVERY 72 HOURS
     Route: 062
  3. ROXICODONE [Concomitant]
     Indication: PAIN
     Dosage: 11 OR 12 TABLETS A DAY OR 3 EVERY 4HOUR.??BEGAN FEW YEARS AGO
     Route: 048
  4. ALBUTEROL [Concomitant]
     Indication: ASTHMA
     Dosage: 2 PUFFS AS NEEDED.??BEAGN 30 YEARS AGO.
     Route: 048
  5. ADVAIR [Concomitant]
     Indication: ASTHMA
     Dosage: 250, ONCE IN THE MORNING.
     Route: 048
     Dates: start: 2008

REACTIONS (1)
  - Drug dose omission [Not Recovered/Not Resolved]
